FAERS Safety Report 5528030-7 (Version None)
Quarter: 2007Q4

REPORT INFORMATION
  Report Type: 
  Country: None (occurrence: None)
  Receive Date: 20071126
  Receipt Date: 20071126
  Transmission Date: 20080405
  Serious: Yes (Other)
  Sender: FDA-Public Use
  Company Number: None

PATIENT
  Age: 88 Year
  Sex: Female
  Weight: 72.5755 kg

DRUGS (1)
  1. FUROSEMIDE [Suspect]
     Dosage: 60MG DAILY IN THE MORNING

REACTIONS (3)
  - DRUG INEFFECTIVE [None]
  - FLUID RETENTION [None]
  - SWELLING [None]
